FAERS Safety Report 9638235 (Version 2)
Quarter: 2014Q1

REPORT INFORMATION
  Report Type: Spontaneous
  Country: DE (occurrence: DE)
  Receive Date: 20131022
  Receipt Date: 20140314
  Transmission Date: 20141002
  Serious: Yes (Other)
  Sender: FDA-Public Use
  Company Number: DE-B.I. PHARMACEUTICALS,INC./RIDGEFIELD-2013-BI-32752DE

PATIENT
  Age: 80 Year
  Sex: Female

DRUGS (4)
  1. PRADAXA [Suspect]
     Indication: CEREBROVASCULAR ACCIDENT
     Dosage: 150 MG
     Route: 048
     Dates: start: 201204
  2. PRADAXA [Suspect]
     Indication: MYOCARDIAL INFARCTION
  3. LISILICH 10/2.5 [Concomitant]
     Route: 065
  4. CONCOR COR 2.5 [Concomitant]
     Route: 065

REACTIONS (1)
  - Flatulence [Recovered/Resolved]
